FAERS Safety Report 4355778-2 (Version None)
Quarter: 2004Q2

REPORT INFORMATION
  Report Type: 
  Country: None (occurrence: None)
  Receive Date: 20040505
  Receipt Date: 20040430
  Transmission Date: 20050107
  Serious: Yes (Death)
  Sender: FDA-Public Use
  Company Number: USA-2004-0014903

PATIENT
  Age: 45 Year
  Sex: Male

DRUGS (1)
  1. OXYCODONE HCL [Suspect]

REACTIONS (11)
  - AORTIC ATHEROSCLEROSIS [None]
  - ATHEROSCLEROSIS [None]
  - BLOOD CHLORIDE INCREASED [None]
  - BLOOD POTASSIUM INCREASED [None]
  - BLOOD UREA INCREASED [None]
  - CORONARY ARTERY ATHEROSCLEROSIS [None]
  - CORONARY ARTERY STENOSIS [None]
  - DRUG LEVEL INCREASED [None]
  - FATIGUE [None]
  - PNEUMONIA [None]
  - PULMONARY OEDEMA [None]
